FAERS Safety Report 10742541 (Version 2)
Quarter: 2015Q2

REPORT INFORMATION
  Report Type: Spontaneous
  Country: AR (occurrence: AR)
  Receive Date: 20150127
  Receipt Date: 20150429
  Transmission Date: 20150821
  Serious: Yes (Hospitalization)
  Sender: FDA-Public Use
  Company Number: AR-PFIZER INC-2015029733

PATIENT
  Age: 69 Year
  Sex: Female

DRUGS (1)
  1. SOMAVERT [Suspect]
     Active Substance: PEGVISOMANT
     Indication: ACROMEGALY
     Dosage: 15 MG, 5 X WEEK
     Dates: start: 20111201

REACTIONS (6)
  - Gait disturbance [Recovering/Resolving]
  - Urinary tract infection [Unknown]
  - Feeling cold [Unknown]
  - Varicose vein [Unknown]
  - Cholelithiasis [Unknown]
  - Seasonal allergy [Unknown]

NARRATIVE: CASE EVENT DATE: 201411
